FAERS Safety Report 17132352 (Version 1)
Quarter: 2019Q4

REPORT INFORMATION
  Report Type: Other
  Country: GB (occurrence: GB)
  Receive Date: 20191210
  Receipt Date: 20191210
  Transmission Date: 20200122
  Serious: Yes (Other)
  Sender: FDA-Public Use
  Company Number: GB-LUPIN PHARMACEUTICALS INC.-2019-06374

PATIENT
  Age: 20 Year
  Sex: Female
  Weight: 54.88 kg

DRUGS (2)
  1. SERTRALINE [Suspect]
     Active Substance: SERTRALINE HYDROCHLORIDE
     Indication: ANXIETY
     Dosage: 50 MILLIGRAM (UPPED TO 100 MG)
     Route: 048
     Dates: start: 201901
  2. SERTRALINE [Suspect]
     Active Substance: SERTRALINE HYDROCHLORIDE
     Dosage: 100 MILLIGRAM
     Route: 048
     Dates: end: 20190911

REACTIONS (4)
  - Hyperhidrosis [Not Recovered/Not Resolved]
  - Mydriasis [Recovered/Resolved]
  - Bruxism [Recovering/Resolving]
  - Diarrhoea [Not Recovered/Not Resolved]

NARRATIVE: CASE EVENT DATE: 201901
